FAERS Safety Report 11370257 (Version 1)
Quarter: 2015Q3

REPORT INFORMATION
  Report Type: Spontaneous
  Country: US (occurrence: None)
  Receive Date: 20150811
  Receipt Date: 20150811
  Transmission Date: 20151125
  Serious: No
  Sender: FDA-Public Use
  Company Number: None

PATIENT
  Sex: Female

DRUGS (1)
  1. MEDROXYPROGESTERONE AC [Suspect]
     Active Substance: MEDROXYPROGESTERONE ACETATE
     Indication: CONTRACEPTION
     Dosage: 150MG/ML; 150MG ONCE Q3MONTHS
     Route: 030
     Dates: start: 20150514

REACTIONS (2)
  - Anxiety [None]
  - Depression [None]
